FAERS Safety Report 4414455-X (Version None)
Quarter: 2004Q3

REPORT INFORMATION
  Report Type: 
  Country: None (occurrence: None)
  Receive Date: 20040729
  Receipt Date: 20040715
  Transmission Date: 20050211
  Serious: Yes (Congenital Anomaly)
  Sender: FDA-Public Use
  Company Number: 2004-DE-03968GD

PATIENT
  Sex: 0

DRUGS (3)
  1. NAPROXEN [Suspect]
     Dosage: IU
     Route: 015
  2. SULFASALAZINE [Suspect]
     Dosage: IU
     Route: 015
  3. PREDNISOLONE [Suspect]
     Dosage: IU
     Route: 015

REACTIONS (2)
  - CLEFT LIP [None]
  - DRUG EXPOSURE DURING PREGNANCY [None]
